FAERS Safety Report 12491781 (Version 1)
Quarter: 2016Q2

REPORT INFORMATION
  Report Type: Spontaneous
  Country: US (occurrence: US)
  Receive Date: 20160623
  Receipt Date: 20160623
  Transmission Date: 20160815
  Serious: No
  Sender: FDA-Public Use
  Company Number: US-BIOGEN-2016BI00232518

PATIENT
  Sex: Female

DRUGS (1)
  1. TECFIDERA [Suspect]
     Active Substance: DIMETHYL FUMARATE
     Indication: MULTIPLE SCLEROSIS
     Route: 048
     Dates: start: 20140603

REACTIONS (6)
  - Herpes zoster [Recovered/Resolved]
  - Nervousness [Unknown]
  - Stress [Unknown]
  - Loss of consciousness [Not Recovered/Not Resolved]
  - Cognitive disorder [Unknown]
  - Drug dose omission [Unknown]
